FAERS Safety Report 13075910 (Version 1)
Quarter: 2016Q4

REPORT INFORMATION
  Report Type: Spontaneous
  Country: CA (occurrence: CA)
  Receive Date: 20161230
  Receipt Date: 20161230
  Transmission Date: 20170207
  Serious: Yes (Other)
  Sender: FDA-Public Use
  Company Number: CA-TEVA-722982ACC

PATIENT
  Age: 79 Year
  Sex: Male

DRUGS (5)
  1. APIXABAN [Concomitant]
     Active Substance: APIXABAN
  2. ALENDRONATE [Suspect]
     Active Substance: ALENDRONATE SODIUM
     Indication: BONE DENSITY ABNORMAL
  3. ALENDRONATE [Suspect]
     Active Substance: ALENDRONATE SODIUM
     Indication: HIP FRACTURE
     Route: 048
  4. PREDNISONE. [Concomitant]
     Active Substance: PREDNISONE
  5. MICARDIS 80MG TAB [Concomitant]

REACTIONS (3)
  - Eosinophil count increased [Recovering/Resolving]
  - Perivascular dermatitis [Recovering/Resolving]
  - Drug eruption [Recovering/Resolving]
